FAERS Safety Report 7525209-X (Version None)
Quarter: 2011Q2

REPORT INFORMATION
  Report Type: 
  Country: None (occurrence: None)
  Receive Date: 20110602
  Receipt Date: 20110602
  Transmission Date: 20111010
  Serious: No
  Sender: FDA-Public Use
  Company Number: None

PATIENT
  Sex: Female

DRUGS (2)
  1. PHENTERMINE [Suspect]
  2. PONDIMIN [Suspect]

REACTIONS (3)
  - CARDIAC FAILURE CONGESTIVE [None]
  - ATRIAL FIBRILLATION [None]
  - CARDIAC VALVE DISEASE [None]
